FAERS Safety Report 25236262 (Version 2)
Quarter: 2025Q2

REPORT INFORMATION
  Report Type: Spontaneous
  Country: US (occurrence: US)
  Receive Date: 20250424
  Receipt Date: 20250507
  Transmission Date: 20250716
  Serious: Yes (Hospitalization)
  Sender: INCYTE
  Company Number: US-EVENT-002315

PATIENT
  Age: 66 Year

DRUGS (1)
  1. OPZELURA [Suspect]
     Active Substance: RUXOLITINIB PHOSPHATE
     Indication: Vitiligo
     Dosage: 1.5 PERCENT, APPLY A THIN LAYER TO AFFECTED AREA(S) OF THE FACE TWICE DAILY AS DIRECTED
     Route: 065

REACTIONS (3)
  - Chest pain [Unknown]
  - Application site erythema [Unknown]
  - Therapeutic product effect delayed [Unknown]
